FAERS Safety Report 8260611-2 (Version None)
Quarter: 2012Q2

REPORT INFORMATION
  Report Type: 
  Country: None (occurrence: None)
  Receive Date: 20120404
  Receipt Date: 20120330
  Transmission Date: 20120825
  Serious: Yes (Other)
  Sender: FDA-Public Use
  Company Number: RS-BAXTER-2012BAX002115

PATIENT
  Age: 49 Year
  Sex: Female

DRUGS (5)
  1. ADRIAMYCIN PFS [Suspect]
  2. VINCRISTINE [Suspect]
  3. FLUDARABINE PHOSPHATE [Suspect]
     Route: 042
  4. PREDNISOLONE [Suspect]
  5. CYCLOPHOSPHAMIDE [Suspect]
     Route: 042

REACTIONS (2)
  - MYELODYSPLASTIC SYNDROME [None]
  - ACUTE MYELOID LEUKAEMIA [None]
